FAERS Safety Report 8292785-1 (Version None)
Quarter: 2012Q2

REPORT INFORMATION
  Report Type: 
  Country: None (occurrence: None)
  Receive Date: 20120417
  Receipt Date: 20120126
  Transmission Date: 20120825
  Serious: No
  Sender: FDA-Public Use
  Company Number: US-ASTRAZENECA-2012SE05804

PATIENT
  Age: 59 Year
  Sex: Male
  Weight: 75.7 kg

DRUGS (7)
  1. NEXIUM [Suspect]
     Indication: GASTROOESOPHAGEAL REFLUX DISEASE
     Route: 048
  2. WELLBUTRIN [Concomitant]
  3. IBUPROFEN [Concomitant]
     Indication: PAIN
  4. SERTRALINE HYDROCHLORIDE [Concomitant]
  5. PROTONIX [Concomitant]
  6. VICODIN [Concomitant]
     Indication: PAIN
  7. NEURONTIN [Concomitant]

REACTIONS (4)
  - PAIN IN EXTREMITY [None]
  - ERUCTATION [None]
  - ABDOMINAL PAIN UPPER [None]
  - ABDOMINAL DISCOMFORT [None]
